FAERS Safety Report 14813341 (Version 1)
Quarter: 2018Q2

REPORT INFORMATION
  Report Type: Spontaneous
  Country: FR (occurrence: FR)
  Receive Date: 20180426
  Receipt Date: 20180426
  Transmission Date: 20180711
  Serious: Yes (Hospitalization)
  Sender: FDA-Public Use
  Company Number: FR-TEVA-2018-FR-886203

PATIENT
  Age: 82 Year
  Sex: Female

DRUGS (12)
  1. MALEATE D^ENALAPRIL [Concomitant]
  2. SIMVASTATINE [Concomitant]
     Active Substance: SIMVASTATIN
  3. LEVOFLOXACINE HEMIHYDRATE [Suspect]
     Active Substance: LEVOFLOXACIN
     Dosage: 1000 MILLIGRAM DAILY;
     Route: 042
  4. AMLODIPINE [Suspect]
     Active Substance: AMLODIPINE BESYLATE
     Indication: HYPERTENSION
     Dosage: 10 MILLIGRAM DAILY;
     Route: 048
  5. LEVOFLOXACINE HEMIHYDRATE [Suspect]
     Active Substance: LEVOFLOXACIN
     Indication: OSTEOMYELITIS
     Dosage: 1000 MILLIGRAM DAILY;
     Route: 048
  6. CLINDAMYCINE (PHOSPHATE DE) [Suspect]
     Active Substance: CLINDAMYCIN PHOSPHATE
     Indication: OSTEOMYELITIS
     Dosage: 1200 MILLIGRAM DAILY;
     Route: 042
  7. GANFORT 300 MICROGRAMMES/ML + 5 MG/ML, COLLYRE EN SOLUTION [Concomitant]
  8. AMLODIPINE [Suspect]
     Active Substance: AMLODIPINE BESYLATE
     Dosage: 5 MILLIGRAM DAILY;
     Route: 048
  9. CLINDAMYCINE BASE [Suspect]
     Active Substance: CLINDAMYCIN HYDROCHLORIDE
     Indication: OSTEOMYELITIS
     Dosage: 1200 MILLIGRAM DAILY;
     Route: 048
  10. RILMENIDINE BIOGARAN [Concomitant]
     Active Substance: RILMENIDINE
  11. ALPRAZOLAM. [Concomitant]
     Active Substance: ALPRAZOLAM
  12. MOCLOBEMIDE [Concomitant]
     Active Substance: MOCLOBEMIDE

REACTIONS (1)
  - Toxic skin eruption [Recovering/Resolving]
